FAERS Safety Report 4977380-1 (Version None)
Quarter: 2006Q2

REPORT INFORMATION
  Report Type: 
  Country: None (occurrence: None)
  Receive Date: 20060419
  Receipt Date: 20060413
  Transmission Date: 20061013
  Serious: Yes (Death, Hospitalization)
  Sender: FDA-Public Use
  Company Number: ZA-MERCK-0604ZAF00011

PATIENT
  Sex: Female

DRUGS (1)
  1. PRIMAXIN [Suspect]
     Indication: PNEUMONIA KLEBSIELLA
     Route: 051

REACTIONS (2)
  - RENAL FAILURE [None]
  - SEPTIC SHOCK [None]
